FAERS Safety Report 8727503 (Version 2)
Quarter: 2012Q4

REPORT INFORMATION
  Report Type: 
  Country: US (occurrence: US)
  Receive Date: 20120816
  Receipt Date: 20121218
  Transmission Date: 20130627
  Serious: Yes (Other)
  Sender: FDA-Public Use
  Company Number: US-ALLERGAN-1206582US

PATIENT
  Age: 35 Year
  Sex: Female
  Weight: 58.96 kg

DRUGS (2)
  1. LASTACAFT [Suspect]
     Indication: EYE ALLERGY
     Dosage: 2 Gtt, qd
     Route: 047
     Dates: start: 20120404, end: 20120411
  2. CHLORTRIMETON [Concomitant]
     Indication: DRUG USE FOR UNKNOWN INDICATION
     Dosage: UNK UNK, q12h
     Route: 048

REACTIONS (4)
  - Hypersensitivity [Recovered/Resolved]
  - Skin exfoliation [Recovered/Resolved]
  - Eye swelling [Recovered/Resolved]
  - Eye discharge [Recovered/Resolved]
